FAERS Safety Report 10600045 (Version 1)
Quarter: 2014Q4

REPORT INFORMATION
  Report Type: Spontaneous
  Country: US (occurrence: US)
  Receive Date: 20141121
  Receipt Date: 20141121
  Transmission Date: 20150529
  Serious: Yes (Hospitalization)
  Sender: FDA-Public Use
  Company Number: US-SA-2014SA121416

PATIENT
  Sex: Male
  Weight: 106 kg

DRUGS (2)
  1. RENVELA [Suspect]
     Active Substance: SEVELAMER CARBONATE
     Indication: HYPERPHOSPHATAEMIA
     Dosage: 5 TABS WITH MEALS DAILY FOR YEARS; TOTAL # MEALS AND TOTAL # TABS UNKNOWN
     Route: 048
     Dates: end: 2014
  2. SEVELAMER CARBONATE. [Suspect]
     Active Substance: SEVELAMER CARBONATE
     Indication: HYPERPHOSPHATAEMIA
     Dosage: 6 TABLETS WITH MELAS
     Route: 065
     Dates: start: 201407, end: 20140730

REACTIONS (1)
  - Intestinal obstruction [Recovered/Resolved]

NARRATIVE: CASE EVENT DATE: 20140730
